FAERS Safety Report 9006138 (Version 1)
Quarter: 2012Q4

REPORT INFORMATION
  Report Type: Spontaneous
  Country: US (occurrence: None)
  Receive Date: 20121226
  Receipt Date: 20121226
  Transmission Date: 20130627
  Serious: Yes (Death)
  Sender: FDA-Public Use
  Company Number: AMAG201203159

PATIENT
  Sex: Female

DRUGS (1)
  1. FERAHEME [Suspect]
     Dates: start: 201205, end: 201205

REACTIONS (1)
  - Death [None]
